FAERS Safety Report 8542479-X (Version None)
Quarter: 2012Q3

REPORT INFORMATION
  Report Type: 
  Country: None (occurrence: None)
  Receive Date: 20120726
  Receipt Date: 20120112
  Transmission Date: 20120928
  Serious: Yes (Other)
  Sender: FDA-Public Use
  Company Number: US-ASTRAZENECA-2009UW08295

PATIENT
  Age: 51 Year
  Sex: Male
  Weight: 104.3 kg

DRUGS (18)
  1. THORAZINE [Concomitant]
     Dates: start: 19870101
  2. COLACE [Concomitant]
     Route: 048
     Dates: start: 20051205, end: 20060227
  3. SEROQUEL [Suspect]
     Route: 048
     Dates: start: 20051109, end: 20051215
  4. ZOLOFT [Concomitant]
     Dosage: 100 MG, 0.5 TAB PO QAM
     Route: 048
     Dates: start: 20051109, end: 20060104
  5. SEROQUEL [Suspect]
     Route: 048
     Dates: start: 20051109, end: 20051215
  6. SEROQUEL [Suspect]
     Indication: SCHIZOPHRENIA
     Route: 048
     Dates: start: 20030707, end: 20070205
  7. SEROQUEL [Suspect]
     Indication: FLASHBACK
     Route: 048
     Dates: start: 20030707, end: 20070205
  8. PREVACID [Concomitant]
     Route: 048
     Dates: start: 20051205, end: 20060227
  9. SEROQUEL [Suspect]
     Indication: DEPRESSION
     Route: 048
     Dates: start: 20030707, end: 20070205
  10. SIMETHICONE [Concomitant]
     Route: 048
     Dates: start: 20051205, end: 20060227
  11. ZOLOFT [Concomitant]
     Route: 048
     Dates: start: 20070313
  12. SEROQUEL [Suspect]
     Indication: SLEEP DISORDER
     Route: 048
     Dates: start: 20030707, end: 20070205
  13. SEROQUEL [Suspect]
     Route: 048
     Dates: start: 20051109, end: 20051215
  14. PROZAC [Concomitant]
     Dates: start: 20020101, end: 20090101
  15. SEROQUEL [Suspect]
     Route: 048
     Dates: start: 20051109, end: 20051215
  16. HALDOL [Concomitant]
     Dates: start: 19870101
  17. LOVASTATIN [Concomitant]
     Route: 048
     Dates: start: 20051205, end: 20060227
  18. RISPERDAL [Concomitant]
     Dates: start: 20030101, end: 20090101

REACTIONS (9)
  - CATARACT [None]
  - BLOOD CHOLESTEROL INCREASED [None]
  - DIABETIC KETOACIDOSIS [None]
  - ASTHMA [None]
  - OEDEMA PERIPHERAL [None]
  - TYPE 2 DIABETES MELLITUS [None]
  - TYPE 1 DIABETES MELLITUS [None]
  - OBESITY [None]
  - DIABETIC COMA [None]
